FAERS Safety Report 5131969-8 (Version None)
Quarter: 2006Q4

REPORT INFORMATION
  Report Type: 
  Country: None (occurrence: None)
  Receive Date: 20061017
  Receipt Date: 20060825
  Transmission Date: 20070319
  Serious: Yes (Other)
  Sender: FDA-Public Use
  Company Number: 2006SP000505

PATIENT
  Age: 49 Year
  Sex: Female

DRUGS (7)
  1. PEG-INTRON [Suspect]
     Indication: HEPATITIS C
     Dosage: SC
     Route: 058
     Dates: start: 20060703
  2. RIBAVIRIN [Suspect]
     Indication: HEPATITIS C
     Dosage: PO
     Route: 048
     Dates: start: 20060703
  3. PROMETHAZONE HYDROCHLORIDE (CON.) [Concomitant]
  4. OXYCODONE HYDROCHLORIDE (CON.) [Concomitant]
  5. METHOCARBAMOL (CON.) [Concomitant]
  6. ALBUTEROL SULFATE (CON.) [Concomitant]
  7. PREMARIN (CON.) [Concomitant]

REACTIONS (12)
  - DYSPEPSIA [None]
  - FATIGUE [None]
  - FEELING COLD [None]
  - HEAD DISCOMFORT [None]
  - HYPERHIDROSIS [None]
  - INSOMNIA [None]
  - PYREXIA [None]
  - RASH [None]
  - SKIN EXFOLIATION [None]
  - SKIN FISSURES [None]
  - SKIN HAEMORRHAGE [None]
  - VOMITING [None]
